FAERS Safety Report 9691614 (Version 3)
Quarter: 2014Q2

REPORT INFORMATION
  Report Type: Spontaneous
  Country: US (occurrence: US)
  Receive Date: 20131115
  Receipt Date: 20140430
  Transmission Date: 20141212
  Serious: Yes (Death, Congenital Anomaly, Other)
  Sender: FDA-Public Use
  Company Number: US-ABBVIE-13P-163-1079271-00

PATIENT
  Sex: 0

DRUGS (1)
  1. DEPAKOTE [Suspect]
     Indication: MATERNAL EXPOSURE TIMING UNSPECIFIED
     Route: 064

REACTIONS (9)
  - Pericardial effusion [Fatal]
  - Pleural effusion [Fatal]
  - Ascites [Fatal]
  - Hydrops foetalis [Fatal]
  - Pulmonary hypoplasia [Fatal]
  - Foetal death [Fatal]
  - Skin maceration [Unknown]
  - Cell death [Unknown]
  - Foetal exposure during pregnancy [Unknown]
